FAERS Safety Report 4826983-3 (Version None)
Quarter: 2005Q4

REPORT INFORMATION
  Report Type: 
  Country: None (occurrence: None)
  Receive Date: 20051014
  Receipt Date: 20050816
  Transmission Date: 20060501
  Serious: No
  Sender: FDA-Public Use
  Company Number: 2005SP000777

PATIENT
  Age: 40 Year
  Sex: Female
  Weight: 61.2356 kg

DRUGS (3)
  1. LUNESTA [Suspect]
     Dosage: 2 MG;HS;ORAL
     Route: 048
     Dates: start: 20050511
  2. SIMVASTATIN [Concomitant]
  3. ZETIA [Concomitant]

REACTIONS (3)
  - HOT FLUSH [None]
  - OEDEMA PERIPHERAL [None]
  - PRURITUS [None]
